FAERS Safety Report 23147436 (Version 2)
Quarter: 2023Q4

REPORT INFORMATION
  Report Type: Spontaneous
  Country: CO (occurrence: CO)
  Receive Date: 20231106
  Receipt Date: 20231116
  Transmission Date: 20240110
  Serious: Yes (Other)
  Sender: FDA-Public Use
  Company Number: CO-CELLTRION INC.-2023CO021292

PATIENT

DRUGS (1)
  1. INFLIXIMAB [Suspect]
     Active Substance: INFLIXIMAB
     Indication: Crohn^s disease
     Dosage: 300 MG EVERY 6 WEEKS
     Route: 042
     Dates: start: 20230315

REACTIONS (1)
  - Colectomy [Unknown]

NARRATIVE: CASE EVENT DATE: 20231001
